FAERS Safety Report 7869279-8 (Version None)
Quarter: 2011Q4

REPORT INFORMATION
  Report Type: 
  Country: None (occurrence: None)
  Receive Date: 20111028
  Receipt Date: 20101229
  Transmission Date: 20120403
  Serious: No
  Sender: FDA-Public Use
  Company Number: US-AMGEN-USASP2010012213

PATIENT
  Age: 59 Year
  Sex: Female
  Weight: 49.887 kg

DRUGS (6)
  1. MELOXICAM [Concomitant]
     Dosage: 15 MG, UNK
  2. AMITRIPTYLINE HCL [Concomitant]
     Dosage: 10 MG, UNK
  3. METHOTREXATE [Concomitant]
     Dosage: 2.5 MG, UNK
  4. ENBREL [Suspect]
     Indication: PRODUCT USED FOR UNKNOWN INDICATION
     Dosage: 50 MG, QWK
     Route: 058
  5. FOLIC ACID [Concomitant]
     Dosage: 1 MG, UNK
  6. CALCIUM [Concomitant]
     Dosage: 600 MG, UNK

REACTIONS (4)
  - IMPAIRED HEALING [None]
  - LOWER RESPIRATORY TRACT INFECTION [None]
  - THERMAL BURN [None]
  - EPISTAXIS [None]
